FAERS Safety Report 5128120-7 (Version None)
Quarter: 2006Q4

REPORT INFORMATION
  Report Type: 
  Country: None (occurrence: None)
  Receive Date: 20061017
  Receipt Date: 20061005
  Transmission Date: 20070319
  Serious: Yes (Other)
  Sender: FDA-Public Use
  Company Number: GB-JNJFOC-20060905457

PATIENT
  Sex: Female

DRUGS (3)
  1. REMICADE [Suspect]
     Route: 042
  2. REMICADE [Suspect]
     Indication: CROHN'S DISEASE
     Dosage: 2 INFUSIONS
     Route: 042
  3. HYDROCORTISONE ACETATE [Concomitant]
     Indication: PREMEDICATION
     Route: 042

REACTIONS (8)
  - DYSPNOEA [None]
  - FACE OEDEMA [None]
  - INFUSION RELATED REACTION [None]
  - LARYNGEAL OEDEMA [None]
  - PALPITATIONS [None]
  - PYREXIA [None]
  - RASH GENERALISED [None]
  - TACHYCARDIA [None]
